FAERS Safety Report 15410826 (Version 1)
Quarter: 2018Q3

REPORT INFORMATION
  Report Type: Report from Study
  Country: IT (occurrence: IT)
  Receive Date: 20180921
  Receipt Date: 20180921
  Transmission Date: 20181010
  Serious: Yes (Hospitalization)
  Sender: FDA-Public Use
  Company Number: IT-TEVA-2018-IT-956784

PATIENT
  Age: 88 Year
  Sex: Female

DRUGS (3)
  1. CRESTOR 5 MG COMPRESSE RIVESTITE CON FILM [Concomitant]
     Dosage: 5 MG
     Route: 048
  2. TELMISARTAN/IDROCLOROTIAZIDE [Concomitant]
     Route: 048
  3. BISOPROLOL HEMIFUMARATE [Suspect]
     Active Substance: BISOPROLOL FUMARATE
     Route: 048

REACTIONS (3)
  - Asthenia [Recovered/Resolved]
  - Dyspnoea [Recovered/Resolved]
  - Bradycardia [Recovered/Resolved]

NARRATIVE: CASE EVENT DATE: 20180211
